FAERS Safety Report 12346543 (Version 1)
Quarter: 2016Q2

REPORT INFORMATION
  Report Type: Spontaneous
  Country: JP (occurrence: JP)
  Receive Date: 20160509
  Receipt Date: 20160509
  Transmission Date: 20160815
  Serious: Yes (Death, Hospitalization)
  Sender: FDA-Public Use
  Company Number: JP-BAYER-2016-052374

PATIENT
  Age: 84 Year
  Sex: Male
  Weight: 61 kg

DRUGS (10)
  1. NEXAVAR [Suspect]
     Active Substance: SORAFENIB
     Indication: HEPATOCELLULAR CARCINOMA
     Dosage: DAILY DOSE 400 MG
     Route: 048
     Dates: start: 20160221, end: 20160229
  2. URSO [Concomitant]
     Active Substance: URSODIOL
     Dosage: 600 MG DAILY DOSE
     Route: 048
  3. LASIX [Concomitant]
     Active Substance: FUROSEMIDE
     Dosage: DAILY DOSE 20 MG
     Dates: end: 20160411
  4. IRBESARTAN. [Concomitant]
     Active Substance: IRBESARTAN
     Dosage: DAILY DOSE 100 MG
     Route: 048
     Dates: end: 20160411
  5. TOLVAPTAN [Concomitant]
     Active Substance: TOLVAPTAN
     Dosage: DAILY DOSE 7.5 MG
     Route: 048
     Dates: end: 20160411
  6. FEBUXOSTAT. [Concomitant]
     Active Substance: FEBUXOSTAT
     Dosage: DAILY DOSE 20 MG
     Route: 048
     Dates: end: 20160411
  7. LIVACT [Concomitant]
     Active Substance: AMINO ACIDS
     Dosage: DAILY DOSE 12.4499998 G
     Route: 048
     Dates: end: 20160411
  8. PARIET [Concomitant]
     Active Substance: RABEPRAZOLE SODIUM
     Dosage: DAILY DOSE 10 MG
     Route: 048
     Dates: end: 20160411
  9. BAYASPIRIN [Concomitant]
     Active Substance: ASPIRIN
     Dosage: DAILY DOSE 100 MG
     Route: 048
     Dates: end: 20160411
  10. AVALIDE [Concomitant]
     Active Substance: HYDROCHLOROTHIAZIDE\IRBESARTAN
     Route: 048

REACTIONS (9)
  - Musculoskeletal pain [Not Recovered/Not Resolved]
  - Myalgia [Recovered/Resolved]
  - Muscular weakness [Recovered/Resolved]
  - Asthenia [Recovered/Resolved]
  - Blood creatine phosphokinase increased [Recovered/Resolved]
  - Groin pain [Not Recovered/Not Resolved]
  - Myoglobinuria [Recovered/Resolved]
  - Hepatic failure [Fatal]
  - Rhabdomyolysis [Recovered/Resolved]

NARRATIVE: CASE EVENT DATE: 20160224
